FAERS Safety Report 12213689 (Version 1)
Quarter: 2016Q1

REPORT INFORMATION
  Report Type: Spontaneous
  Country: US (occurrence: None)
  Receive Date: 20160325
  Receipt Date: 20160325
  Transmission Date: 20160526
  Serious: Yes (Hospitalization)
  Sender: FDA-Public Use
  Company Number: None

PATIENT
  Age: 69 Year
  Sex: Female

DRUGS (3)
  1. DOXIL [Suspect]
     Active Substance: DOXORUBICIN HYDROCHLORIDE
  2. CARBOPLATIN. [Suspect]
     Active Substance: CARBOPLATIN
     Indication: OVARIAN CANCER
     Dosage: FRADCS EVERY 3 WEEKS INDRADERMAL INJECTION
     Dates: start: 20151125
  3. VACCINE CLINICAL TRIAL MC1361 [Concomitant]

REACTIONS (3)
  - Ascites [None]
  - Disease recurrence [None]
  - Small intestinal obstruction [None]

NARRATIVE: CASE EVENT DATE: 20160323
